FAERS Safety Report 16298115 (Version 2)
Quarter: 2020Q4

REPORT INFORMATION
  Report Type: Spontaneous
  Country: US (occurrence: US)
  Receive Date: 20190510
  Receipt Date: 20201215
  Transmission Date: 20210113
  Serious: Yes (Other)
  Sender: FDA-Public Use
  Company Number: US-ASTRAZENECA-2019SE65289

PATIENT
  Age: 52 Year
  Sex: Male
  Weight: 90.7 kg

DRUGS (31)
  1. ALBUTEROL. [Concomitant]
     Active Substance: ALBUTEROL
     Dates: start: 20170926, end: 20190712
  2. ROLAIDS [Concomitant]
     Active Substance: CALCIUM CARBONATE\MAGNESIUM HYDROXIDE
     Dates: start: 2007
  3. MIRTAZAPINE. [Concomitant]
     Active Substance: MIRTAZAPINE
  4. LISINOPRIL. [Concomitant]
     Active Substance: LISINOPRIL
     Indication: BLOOD PRESSURE ABNORMAL
     Dates: start: 20160819, end: 20190712
  5. CHOLESCALCIFEROL [Concomitant]
     Indication: HYPOVITAMINOSIS
     Dates: start: 20161129, end: 20190712
  6. BETAMETHASONE. [Concomitant]
     Active Substance: BETAMETHASONE
     Indication: STEROID THERAPY
     Dates: start: 20160601, end: 20190712
  7. FLUTICASONE. [Concomitant]
     Active Substance: FLUTICASONE
  8. NICOTINE. [Concomitant]
     Active Substance: NICOTINE
  9. TUMS [Concomitant]
     Active Substance: CALCIUM CARBONATE
     Dates: start: 2007
  10. HYDROPHILIC [Concomitant]
  11. BENADRYL [Concomitant]
     Active Substance: DIPHENHYDRAMINE HYDROCHLORIDE
  12. PRILOSEC [Suspect]
     Active Substance: OMEPRAZOLE MAGNESIUM
     Indication: GASTROOESOPHAGEAL REFLUX DISEASE
     Dosage: GENERIC
     Route: 065
     Dates: start: 2009
  13. ACETAMINOPHEN. [Concomitant]
     Active Substance: ACETAMINOPHEN
  14. TESTOSTERONE. [Concomitant]
     Active Substance: TESTOSTERONE
  15. SOMATROPIN. [Concomitant]
     Active Substance: SOMATROPIN
  16. RANITIDINE. [Concomitant]
     Active Substance: RANITIDINE
     Dates: start: 2010, end: 2011
  17. PRILOSEC [Suspect]
     Active Substance: OMEPRAZOLE MAGNESIUM
     Indication: GASTROOESOPHAGEAL REFLUX DISEASE
     Route: 048
     Dates: start: 200901, end: 201812
  18. LEVOTHYROXINE. [Concomitant]
     Active Substance: LEVOTHYROXINE
     Indication: HYPOTHYROIDISM
     Dates: start: 20190128, end: 20190712
  19. PRILOSEC [Suspect]
     Active Substance: OMEPRAZOLE MAGNESIUM
     Indication: GASTROOESOPHAGEAL REFLUX DISEASE
     Route: 048
  20. ROPINIROLE. [Concomitant]
     Active Substance: ROPINIROLE
     Indication: DOPAMINERGIC DRUG THERAPY
     Dates: start: 20160131, end: 20190712
  21. AMLODIPINE [Concomitant]
     Active Substance: AMLODIPINE BESYLATE
     Indication: BLOOD CALCIUM
     Dates: start: 20170301, end: 20190712
  22. HYDROCORTISONE. [Concomitant]
     Active Substance: HYDROCORTISONE
  23. ZOSTER [Concomitant]
  24. GABAPENTIN. [Concomitant]
     Active Substance: GABAPENTIN
     Indication: NEURALGIA
     Dates: start: 20160331, end: 20190712
  25. HYDROXYCHLOROQUINE SULFATE. [Concomitant]
     Active Substance: HYDROXYCHLOROQUINE SULFATE
     Indication: RHEUMATOID ARTHRITIS
     Dates: start: 20170926, end: 20190712
  26. ASPIRIN. [Concomitant]
     Active Substance: ASPIRIN
     Indication: ANGIOPATHY
     Dates: start: 2019
  27. PSYLLIUM [Concomitant]
     Active Substance: PLANTAGO SEED
  28. ROPINIROLE HCL [Concomitant]
     Active Substance: ROPINIROLE HYDROCHLORIDE
  29. UREA. [Concomitant]
     Active Substance: UREA
  30. BETAMETHASONE DIPROPIONATE. [Concomitant]
     Active Substance: BETAMETHASONE DIPROPIONATE
  31. SODIUM CHLORIDE. [Concomitant]
     Active Substance: SODIUM CHLORIDE

REACTIONS (3)
  - Chronic kidney disease [Not Recovered/Not Resolved]
  - Renal failure [Unknown]
  - Gastrooesophageal reflux disease [Not Recovered/Not Resolved]

NARRATIVE: CASE EVENT DATE: 2014
